FAERS Safety Report 18563698 (Version 2)
Quarter: 2021Q1

REPORT INFORMATION
  Report Type: Spontaneous
  Country: US (occurrence: US)
  Receive Date: 20201201
  Receipt Date: 20210204
  Transmission Date: 20210419
  Serious: No
  Sender: FDA-Public Use
  Company Number: US-GLAXOSMITHKLINE-US2020AMR235273

PATIENT
  Age: 38 Year
  Sex: Female
  Weight: 61.22 kg

DRUGS (2)
  1. WELLBUTRIN XL [Suspect]
     Active Substance: BUPROPION HYDROCHLORIDE
     Dosage: 450 MG, QD (150 MG 3 TABLETS ONCE DAILY)
     Route: 048
     Dates: start: 2020
  2. WELLBUTRIN XL [Suspect]
     Active Substance: BUPROPION HYDROCHLORIDE
     Indication: DEPRESSION
     Dosage: 450 MG, QD (150 MG 3 TABLETS ONCE DAILY)
     Route: 048
     Dates: start: 2005, end: 202011

REACTIONS (4)
  - Feeling abnormal [Recovered/Resolved]
  - Intentional product use issue [Unknown]
  - Product dose omission issue [Unknown]
  - Product availability issue [Unknown]

NARRATIVE: CASE EVENT DATE: 202011
